FAERS Safety Report 7254876-3 (Version None)
Quarter: 2011Q1

REPORT INFORMATION
  Report Type: 
  Country: None (occurrence: None)
  Receive Date: 20110129
  Receipt Date: 20100422
  Transmission Date: 20110831
  Serious: No
  Sender: FDA-Public Use
  Company Number: US-ABBOTT-10P-163-0633524-00

PATIENT
  Sex: Female
  Weight: 47.67 kg

DRUGS (6)
  1. ESTRADIOL [Concomitant]
     Indication: HORMONE REPLACEMENT THERAPY
     Route: 048
  2. DARVOCET-N 100 [Concomitant]
     Indication: PAIN
     Dosage: DAILY AS NEEDED AT HOUR OF SLEEP
  3. TEMAZEPAM [Concomitant]
     Indication: INSOMNIA
     Dosage: DAILY AT HOUR OF SLEEP
     Route: 048
  4. TYLENOL-500 [Concomitant]
     Indication: PRODUCT USED FOR UNKNOWN INDICATION
  5. HUMIRA [Suspect]
     Indication: RHEUMATOID ARTHRITIS
     Dates: start: 20100225
  6. CARISOPRODOL [Concomitant]
     Indication: MUSCLE RELAXANT THERAPY
     Route: 048

REACTIONS (8)
  - INJECTION SITE HAEMATOMA [None]
  - PAIN IN EXTREMITY [None]
  - INJECTION SITE PAIN [None]
  - PAIN [None]
  - HERPES ZOSTER [None]
  - CANDIDIASIS [None]
  - INJECTION SITE REACTION [None]
  - DECREASED APPETITE [None]
